FAERS Safety Report 11118710 (Version 6)
Quarter: 2018Q3

REPORT INFORMATION
  Report Type: Spontaneous
  Country: US (occurrence: US)
  Receive Date: 20150518
  Receipt Date: 20180815
  Transmission Date: 20181010
  Serious: Yes (Hospitalization, Other)
  Sender: FDA-Public Use
  Company Number: US-PFIZER INC-2015167792

PATIENT
  Age: 53 Year
  Sex: Female

DRUGS (17)
  1. DURAGESIC [Concomitant]
     Active Substance: FENTANYL
     Dosage: UNK UNK, AS NEEDED
  2. KONSYL /00091301/ [Concomitant]
     Dosage: UNK, DAILY
  3. OPANA [Concomitant]
     Active Substance: OXYMORPHONE HYDROCHLORIDE
     Dosage: 80 MG, 2X/DAY
  4. TYLENOL EXTRA STRENGTH [Concomitant]
     Active Substance: ACETAMINOPHEN
     Dosage: 500 MG, AS NEEDED (3 PO PRN)
     Route: 048
  5. NAPROXEN SODIUM. [Concomitant]
     Active Substance: NAPROXEN SODIUM
     Dosage: 220 MG, 2X/DAY
  6. LYRICA [Suspect]
     Active Substance: PREGABALIN
     Indication: ARACHNOIDITIS
     Dosage: 800 MG, UNK
  7. ASPIRIN /00002701/ [Concomitant]
     Active Substance: ASPIRIN
     Dosage: 81 MG, 1X/DAY
  8. SENNA PLUS [Concomitant]
     Active Substance: DOCUSATE SODIUM\SENNOSIDES\SENNOSIDES A AND B
     Dosage: 3 DF, UNK (SENNOSIDES 8.6MG ?DOCUSATE SODIUM 50MG)
  9. STOOL SOFTENER (DOCUSATE) [Concomitant]
     Active Substance: DOCUSATE
     Dosage: 100 MG, 1X/DAY  (3 PO QHS)
     Route: 048
  10. IBUPROFEN. [Concomitant]
     Active Substance: IBUPROFEN
     Dosage: UNK, AS NEEDED
  11. LEVAQUIN [Concomitant]
     Active Substance: LEVOFLOXACIN
     Dosage: 500 MG, DAILY (ONE TAB DAILY FOR 7 DAYS)
  12. XANAX [Concomitant]
     Active Substance: ALPRAZOLAM
     Dosage: 1 MG, 4X/DAY
  13. TYLENOL PM EXTRA STRENGTH [Concomitant]
     Active Substance: ACETAMINOPHEN\DIPHENHYDRAMINE HYDROCHLORIDE
     Dosage: UNK, AS NEEDED
  14. OXYCODONE HYDROCHLORIDE. [Concomitant]
     Active Substance: OXYCODONE HYDROCHLORIDE
     Dosage: 10 MG SIX TIMES DAILY
     Route: 048
  15. LYRICA [Suspect]
     Active Substance: PREGABALIN
     Dosage: 300 MG, 2X/DAY
  16. HYDROCHLOROTHIAZIDE. [Concomitant]
     Active Substance: HYDROCHLOROTHIAZIDE
     Dosage: 25 MG, 1X/DAY (EVERY MORNING)
  17. B COMPLEX B12 [Concomitant]
     Dosage: UNK, 1X/DAY

REACTIONS (10)
  - Overdose [Unknown]
  - Back disorder [Unknown]
  - Drug ineffective [Unknown]
  - Bronchitis [Unknown]
  - Intentional product use issue [Unknown]
  - Pain in extremity [Unknown]
  - Malaise [Unknown]
  - Product use in unapproved indication [Unknown]
  - Pyrexia [Unknown]
  - Pain [Unknown]
